FAERS Safety Report 10657500 (Version 1)
Quarter: 2014Q4

REPORT INFORMATION
  Report Type: Spontaneous
  Country: US (occurrence: US)
  Receive Date: 20141217
  Receipt Date: 20141217
  Transmission Date: 20150529
  Serious: No
  Sender: FDA-Public Use
  Company Number: US-GLAXOSMITHKLINE-A1046324A

PATIENT

DRUGS (5)
  1. DIOVAN [Concomitant]
     Active Substance: VALSARTAN
  2. POTASSIUM [Concomitant]
     Active Substance: POTASSIUM
  3. VOTRIENT [Suspect]
     Active Substance: PAZOPANIB HYDROCHLORIDE
     Indication: RENAL CANCER
     Dosage: 200 MG AT 2 TABLETS (400 MG) DAILY
     Route: 048
     Dates: start: 20130827, end: 20131007
  4. COUMADIN [Concomitant]
     Active Substance: WARFARIN SODIUM
  5. FUROSEMIDE. [Concomitant]
     Active Substance: FUROSEMIDE

REACTIONS (5)
  - Chest discomfort [Unknown]
  - Dyspnoea [Unknown]
  - Rash [Unknown]
  - Chest pain [Unknown]
  - Hypersensitivity [Unknown]
